FAERS Safety Report 8075761-3 (Version None)
Quarter: 2012Q1

REPORT INFORMATION
  Report Type: 
  Country: None (occurrence: None)
  Receive Date: 20120125
  Receipt Date: 20120125
  Transmission Date: 20120608
  Serious: Yes (Other)
  Sender: FDA-Public Use
  Company Number: None

PATIENT
  Age: 84 Year
  Sex: Female

DRUGS (10)
  1. POTASSIUM CHLORIDE [Concomitant]
  2. SIMVASTATIN [Concomitant]
  3. REVLIMID [Suspect]
     Indication: MULTIPLE MYELOMA
     Dosage: REVLIMID 10 MG DAILY X21D/28D ORALLY 3 CYCLES
     Route: 048
  4. FLUTICASONE PROPIONATE [Concomitant]
  5. BISACODYL [Concomitant]
  6. ASPIRIN [Concomitant]
  7. HYDROCODONE BITARTRATE AND ACETAMINOPHEN [Concomitant]
  8. DOCUSATE [Concomitant]
  9. LORATADINE [Concomitant]
  10. SULFAMETHOXAZOLE AND TRIMETHOPRIM [Concomitant]

REACTIONS (3)
  - OEDEMA PERIPHERAL [None]
  - AGEUSIA [None]
  - NEUROPATHY PERIPHERAL [None]
